FAERS Safety Report 9741088 (Version 2)
Quarter: 2013Q4

REPORT INFORMATION
  Report Type: Spontaneous
  Country: US (occurrence: US)
  Receive Date: 20131209
  Receipt Date: 20131209
  Transmission Date: 20140711
  Serious: No
  Sender: FDA-Public Use
  Company Number: US-GILEAD-2009-0024195

PATIENT
  Age: 45 Year
  Sex: Male

DRUGS (1)
  1. HEPSERA [Suspect]

REACTIONS (1)
  - Drug ineffective [Unknown]
